FAERS Safety Report 9454866 (Version 2)
Quarter: 2013Q4

REPORT INFORMATION
  Report Type: Spontaneous
  Country: JP (occurrence: JP)
  Receive Date: 20130813
  Receipt Date: 20131024
  Transmission Date: 20140711
  Serious: Yes (Hospitalization, Other)
  Sender: FDA-Public Use
  Company Number: JP-ROCHE-1258072

PATIENT
  Age: 81 Year
  Sex: Male
  Weight: 53 kg

DRUGS (12)
  1. XELODA [Suspect]
     Indication: COLON CANCER METASTATIC
     Route: 048
     Dates: start: 20110909, end: 20111014
  2. XELODA [Suspect]
     Indication: COLON CANCER METASTATIC
     Route: 048
     Dates: start: 20111021, end: 20120221
  3. XELODA [Suspect]
     Indication: COLON CANCER METASTATIC
     Route: 048
     Dates: start: 20121023, end: 20121103
  4. XELODA [Suspect]
     Indication: COLON CANCER METASTATIC
     Route: 048
     Dates: start: 20121113, end: 20130422
  5. AVASTIN [Suspect]
     Indication: COLON CANCER RECURRENT
     Route: 041
     Dates: start: 20130226, end: 20130409
  6. ELPLAT [Concomitant]
     Indication: COLON CANCER METASTATIC
     Route: 041
     Dates: start: 20121023, end: 20130409
  7. MAGMITT [Concomitant]
     Indication: CONSTIPATION
     Route: 048
     Dates: start: 20110714, end: 20120405
  8. GASMOTIN [Concomitant]
     Indication: CONSTIPATION
     Route: 048
     Dates: start: 20110808, end: 20120405
  9. FAMOTIDINE [Concomitant]
     Indication: PROPHYLAXIS
     Route: 048
     Dates: start: 20110810, end: 20120405
  10. PYDOXAL [Concomitant]
     Indication: PROPHYLAXIS
     Route: 048
     Dates: start: 20110909, end: 20130423
  11. RINDERON-VG [Concomitant]
     Indication: PROPHYLAXIS
     Route: 003
     Dates: start: 20110909, end: 20130517
  12. HIRUDOID OINTMENT [Concomitant]
     Indication: PROPHYLAXIS
     Route: 003
     Dates: start: 20110909, end: 20130517

REACTIONS (2)
  - Pneumonia [Recovered/Resolved]
  - Metastases to peritoneum [Unknown]
